FAERS Safety Report 12080000 (Version 2)
Quarter: 2016Q2

REPORT INFORMATION
  Report Type: Spontaneous
  Country: GR (occurrence: GR)
  Receive Date: 20160216
  Receipt Date: 20160510
  Transmission Date: 20160815
  Serious: Yes (Hospitalization)
  Sender: FDA-Public Use
  Company Number: GR-009507513-1602GRC007044

PATIENT
  Age: 59 Year
  Sex: Male
  Weight: 92 kg

DRUGS (5)
  1. JANUMET [Suspect]
     Active Substance: METFORMIN HYDROCHLORIDE\SITAGLIPTIN PHOSPHATE
     Indication: TYPE 2 DIABETES MELLITUS
     Dosage: 1 DF, BID (1X2)
     Route: 048
     Dates: start: 2012
  2. DIAMICRON [Concomitant]
     Active Substance: GLICLAZIDE
     Dosage: 1 DF(STRENGTH: 30MG), BID (1X2)
     Dates: start: 2012
  3. DIAMICRON [Concomitant]
     Active Substance: GLICLAZIDE
     Indication: DIABETES MELLITUS
     Dosage: 1 DF(STRENGTH: 60MG), QD (1X1)
  4. ACTOS [Concomitant]
     Active Substance: PIOGLITAZONE HYDROCHLORIDE
     Indication: DIABETES MELLITUS
     Dosage: 1 DF, QD (1X1)
  5. GLUCOPHAGE [Concomitant]
     Active Substance: METFORMIN HYDROCHLORIDE
     Dosage: 1/2 AT NOON
     Dates: start: 2012

REACTIONS (2)
  - Urinary tract infection [Recovered/Resolved]
  - Blood glucose increased [Recovered/Resolved]

NARRATIVE: CASE EVENT DATE: 201508
